FAERS Safety Report 9917604 (Version 2)
Quarter: 2014Q1

REPORT INFORMATION
  Report Type: Spontaneous
  Country: JP (occurrence: JP)
  Receive Date: 20140221
  Receipt Date: 20140312
  Transmission Date: 20141002
  Serious: Yes (Other)
  Sender: FDA-Public Use
  Company Number: JP-009507513-1402JPN010531

PATIENT
  Age: 61 Year
  Sex: Male

DRUGS (7)
  1. REMERON [Suspect]
     Indication: DEPRESSION
     Dosage: 45 MG, QD
     Route: 048
     Dates: start: 20131026, end: 20131102
  2. REMERON [Suspect]
     Dosage: 45 MG, QD
     Route: 048
     Dates: start: 201308, end: 20131025
  3. REMERON [Suspect]
     Dosage: 30 MG, QD
     Route: 048
     Dates: start: 20131103, end: 20131130
  4. REMERON [Suspect]
     Dosage: 15 MG, QD
     Route: 048
     Dates: start: 20131104
  5. DEPAKENE-R [Concomitant]
     Indication: DEPRESSION
     Dosage: FORMULATION POR, 600 MG, QD DIVIDED DOSE FREQUENCY UNKNOWN
     Route: 048
  6. ABILIFY [Concomitant]
     Dosage: FORMULATION POR, 6 MG, QD, DIVIDED DOSE FREQUENCY UNKNOWN
     Route: 048
  7. ROHYPNOL [Concomitant]
     Dosage: FORMULATION POR, 2 MG, QD
     Route: 048

REACTIONS (2)
  - Convulsion [Recovered/Resolved]
  - Mania [Recovered/Resolved]
